FAERS Safety Report 9228985 (Version 1)
Quarter: 2013Q2

REPORT INFORMATION
  Report Type: Spontaneous
  Country: BR (occurrence: BR)
  Receive Date: 20130412
  Receipt Date: 20130412
  Transmission Date: 20140414
  Serious: Yes (Hospitalization)
  Sender: FDA-Public Use
  Company Number: BR-ASTRAZENECA-2013SE21859

PATIENT
  Age: 26 Year
  Sex: Female
  Weight: 76 kg

DRUGS (1)
  1. SYMBICORT TURBUHALER [Suspect]
     Indication: DYSPNOEA
     Dosage: 320/9 MCG DAILY
     Route: 055
     Dates: start: 201209

REACTIONS (1)
  - Myocardial infarction [Recovered/Resolved]
